FAERS Safety Report 17168409 (Version 4)
Quarter: 2020Q1

REPORT INFORMATION
  Report Type: Spontaneous
  Country: US (occurrence: US)
  Receive Date: 20191218
  Receipt Date: 20200207
  Transmission Date: 20200409
  Serious: No
  Sender: FDA-Public Use
  Company Number: US-GLAXOSMITHKLINE-US2019224053

PATIENT
  Sex: Female

DRUGS (1)
  1. BENLYSTA [Suspect]
     Active Substance: BELIMUMAB
     Indication: PRODUCT USED FOR UNKNOWN INDICATION
     Dosage: UNK
     Route: 058
     Dates: start: 20191007

REACTIONS (5)
  - Accidental exposure to product [Recovered/Resolved]
  - Product complaint [Unknown]
  - Injection site pain [Recovering/Resolving]
  - Underdose [Unknown]
  - Condition aggravated [Recovering/Resolving]
